FAERS Safety Report 5525794-3 (Version None)
Quarter: 2007Q4

REPORT INFORMATION
  Report Type: 
  Country: None (occurrence: None)
  Receive Date: 20071126
  Receipt Date: 20071116
  Transmission Date: 20080405
  Serious: Yes (Hospitalization)
  Sender: FDA-Public Use
  Company Number: JP-ABBOTT-07P-087-0425157-00

PATIENT
  Sex: Male
  Weight: 53 kg

DRUGS (8)
  1. SEVOFLURANE [Suspect]
     Indication: ANAESTHESIA
     Route: 055
     Dates: start: 20060615, end: 20060615
  2. SEVOFLURANE [Suspect]
     Indication: INDUCTION AND MAINTENANCE OF ANAESTHESIA
     Route: 055
     Dates: start: 20060630, end: 20060630
  3. PROPOFOL [Concomitant]
     Indication: INDUCTION OF ANAESTHESIA
     Route: 042
     Dates: start: 20060630, end: 20060630
  4. VECURONIUM BROMIDE [Concomitant]
     Indication: MUSCLE RELAXANT THERAPY
     Route: 042
     Dates: start: 20060630, end: 20060630
  5. MEPIVACAINE HCL [Concomitant]
     Indication: INDUCTION OF ANAESTHESIA
     Route: 008
     Dates: start: 20060630, end: 20060630
  6. MORPHINE HYDROCHLORIDE HYDRATE [Concomitant]
     Indication: DRUG USE FOR UNKNOWN INDICATION
     Route: 008
     Dates: start: 20060630, end: 20060701
  7. ROPIVACAINE HYDROCHLORIDE HYDRATE [Concomitant]
     Indication: INDUCTION OF ANAESTHESIA
     Route: 008
     Dates: start: 20060630, end: 20060630
  8. FENTANYL [Concomitant]
     Indication: INDUCTION OF ANAESTHESIA
     Route: 042
     Dates: start: 20060630, end: 20060630

REACTIONS (1)
  - SPINAL CORD INFARCTION [None]
